FAERS Safety Report 26161243 (Version 1)
Quarter: 2025Q4

REPORT INFORMATION
  Report Type: Spontaneous
  Country: US (occurrence: US)
  Receive Date: 20251216
  Receipt Date: 20251216
  Transmission Date: 20260118
  Serious: No
  Sender: ALVOGEN
  Company Number: US-ALVOGEN-2025096167

PATIENT
  Sex: Female

DRUGS (1)
  1. FENTANYL [Suspect]
     Active Substance: FENTANYL
     Indication: Product used for unknown indication
     Dosage: EXP. DATE: MAY-2027 ?GTIN: 00347781426477
     Route: 062

REACTIONS (3)
  - Night sweats [Unknown]
  - Device adhesion issue [Unknown]
  - Device malfunction [Unknown]
